FAERS Safety Report 4592959-7 (Version None)
Quarter: 2005Q1

REPORT INFORMATION
  Report Type: 
  Country: None (occurrence: None)
  Receive Date: 20050228
  Receipt Date: 20050218
  Transmission Date: 20050727
  Serious: Yes (Life-Threatening)
  Sender: FDA-Public Use
  Company Number: DE-GLAXOSMITHKLINE-D0045936A

PATIENT
  Age: 67 Year
  Sex: Female
  Weight: 93 kg

DRUGS (6)
  1. AVANDIA [Suspect]
     Dosage: 16MG PER DAY
     Route: 048
     Dates: start: 20030801, end: 20040601
  2. INSULIN [Suspect]
     Route: 065
  3. DICLO [Concomitant]
     Indication: MYALGIA
     Dosage: 100MG TWICE PER DAY
     Route: 048
     Dates: start: 20030101, end: 20040601
  4. ACTOS [Concomitant]
     Route: 065
     Dates: end: 20040601
  5. BETA-BLOCKER [Concomitant]
     Route: 065
  6. ANGIOTENSIN II ANTAGONIST [Concomitant]
     Route: 065

REACTIONS (8)
  - BLOOD CREATININE INCREASED [None]
  - DYSPNOEA EXERTIONAL [None]
  - GENERAL PHYSICAL HEALTH DETERIORATION [None]
  - MYALGIA [None]
  - OFF LABEL USE [None]
  - PRESCRIBED OVERDOSE [None]
  - RENAL FAILURE [None]
  - WEIGHT INCREASED [None]
